FAERS Safety Report 13536346 (Version 2)
Quarter: 2017Q3

REPORT INFORMATION
  Report Type: Spontaneous
  Country: US (occurrence: US)
  Receive Date: 20170511
  Receipt Date: 20170811
  Transmission Date: 20171127
  Serious: No
  Sender: FDA-Public Use
  Company Number: US-PFIZER INC-2016531022

PATIENT
  Age: 76 Year
  Sex: Female

DRUGS (13)
  1. LYRICA [Suspect]
     Active Substance: PREGABALIN
     Indication: NEUROPATHY PERIPHERAL
     Dosage: 75 MG, 2X/DAY
     Route: 048
     Dates: start: 20161028
  2. RESTASIS [Concomitant]
     Active Substance: CYCLOSPORINE
     Dosage: OPHTHALMIC EMULSION PLACE 1 DROP INTO BOTH EYES, 2X/DAY
     Route: 047
  3. VITAMIN C [Concomitant]
     Active Substance: ASCORBIC ACID
     Dosage: 1000 MG, 2X/DAY
     Route: 048
  4. VITAMIN D3 [Concomitant]
     Active Substance: CHOLECALCIFEROL
     Dosage: 1000 IU, DAILY
     Route: 048
  5. FISH OIL [Concomitant]
     Active Substance: FISH OIL
     Dosage: 1000 MG, 2X/DAY
     Route: 048
  6. LYRICA [Suspect]
     Active Substance: PREGABALIN
     Dosage: 75 MG, 2X/DAY
     Route: 048
     Dates: start: 20170411
  7. VITAMIN B12 [Concomitant]
     Active Substance: CYANOCOBALAMIN
     Dosage: 1000 UG, 2X/DAY
     Route: 048
  8. TYLENOL [Concomitant]
     Active Substance: ACETAMINOPHEN
     Dosage: 1000 MG, 2X/DAY
     Route: 048
  9. CALCIUM CARBONATE-VITAMIN D3 [Concomitant]
     Dosage: (600 MG (1500MG)-400 UNIT), 2X/DAY
     Route: 048
  10. PROVERA [Concomitant]
     Active Substance: MEDROXYPROGESTERONE ACETATE
     Dosage: 2.5 MG, DAILY
     Route: 048
     Dates: start: 20160524
  11. ESTRACE [Concomitant]
     Active Substance: ESTRADIOL
     Dosage: 1 MG, DAILY
     Route: 048
     Dates: start: 20160524
  12. ULTRAM [Concomitant]
     Active Substance: TRAMADOL HYDROCHLORIDE
     Indication: PAIN
     Dosage: 50 MG, 3X/DAY (EVERY 8 HOURS AS NEEDED)
     Route: 048
  13. TRAMADOL. [Concomitant]
     Active Substance: TRAMADOL
     Dosage: 50 MG, UNK
     Dates: start: 201510

REACTIONS (5)
  - Dry mouth [Recovered/Resolved]
  - Peripheral swelling [Recovered/Resolved]
  - Sedation [Recovered/Resolved]
  - Anxiety [Recovered/Resolved]
  - Insomnia [Recovered/Resolved]
